FAERS Safety Report 15406998 (Version 1)
Quarter: 2018Q3

REPORT INFORMATION
  Report Type: Spontaneous
  Country: US (occurrence: US)
  Receive Date: 20180919
  Receipt Date: 20180919
  Transmission Date: 20181010
  Serious: Yes (Life-Threatening, Hospitalization)
  Sender: FDA-Public Use
  Company Number: None

PATIENT
  Age: 76 Year
  Sex: Male
  Weight: 86.18 kg

DRUGS (5)
  1. XIIDRA [Suspect]
     Active Substance: LIFITEGRAST
     Indication: PRODUCT USED FOR UNKNOWN INDICATION
     Dosage: ?          OTHER STRENGTH:1 DROP;QUANTITY:ONE DROP 3 TIMES ;?
     Route: 048
     Dates: start: 20180515, end: 20180522
  2. BENNICAR 20MG [Concomitant]
  3. CELLEBREX 200 MG [Concomitant]
  4. POTASSIUM 20 MG [Concomitant]
  5. COLCRYS  1 PILL DAILY [Concomitant]

REACTIONS (3)
  - Chest discomfort [None]
  - Dyspnoea [None]
  - Hypertension [None]

NARRATIVE: CASE EVENT DATE: 20180515
